FAERS Safety Report 13257284 (Version 1)
Quarter: 2017Q1

REPORT INFORMATION
  Report Type: Spontaneous
  Country: JP (occurrence: JP)
  Receive Date: 20170221
  Receipt Date: 20170221
  Transmission Date: 20170428
  Serious: Yes (Hospitalization, Other)
  Sender: FDA-Public Use
  Company Number: JP-SA-2015SA208910

PATIENT
  Age: 73 Year
  Sex: Female
  Weight: 35 kg

DRUGS (43)
  1. ELPLAT [Suspect]
     Active Substance: OXALIPLATIN
     Indication: COLON CANCER
     Dosage: INJECTION
     Route: 041
     Dates: start: 20130614, end: 20130614
  2. ELPLAT [Suspect]
     Active Substance: OXALIPLATIN
     Indication: COLON CANCER
     Dosage: INJECTION
     Route: 041
     Dates: start: 20130913, end: 20130913
  3. ELPLAT [Suspect]
     Active Substance: OXALIPLATIN
     Indication: COLON CANCER
     Dosage: INJECTION
     Route: 041
     Dates: start: 20130531, end: 20130531
  4. ELPLAT [Suspect]
     Active Substance: OXALIPLATIN
     Indication: COLON CANCER
     Dosage: INJECTION
     Route: 041
     Dates: start: 20130628, end: 20130628
  5. ELPLAT [Suspect]
     Active Substance: OXALIPLATIN
     Indication: COLON CANCER
     Dosage: INJECTION
     Route: 041
     Dates: start: 20130719, end: 20130719
  6. ELPLAT [Suspect]
     Active Substance: OXALIPLATIN
     Indication: COLON CANCER
     Dosage: INJECTION
     Route: 041
     Dates: start: 20140613, end: 20140613
  7. ELPLAT [Suspect]
     Active Substance: OXALIPLATIN
     Indication: COLON CANCER
     Dosage: INJECTION
     Route: 041
     Dates: start: 20140822, end: 20140822
  8. 5-FU [Concomitant]
     Active Substance: FLUOROURACIL
     Dosage: CONTINOUS INFUSION: 2200 MG/BODY
     Dates: start: 20130531
  9. 5-FU [Concomitant]
     Active Substance: FLUOROURACIL
     Dates: end: 20150109
  10. DEXAMETHASONE PALMITATE [Concomitant]
     Active Substance: DEXAMETHASONE
     Dates: start: 20130531, end: 20150109
  11. GENTAMICIN SULFATE/BETAMETHASONE VALERATE [Concomitant]
     Dosage: OINTMENT
     Dates: start: 20140725, end: 20140727
  12. REBAMIPIDE [Concomitant]
     Active Substance: REBAMIPIDE
     Dates: start: 20141219, end: 20150318
  13. ELPLAT [Suspect]
     Active Substance: OXALIPLATIN
     Indication: COLON CANCER
     Dosage: INJECTION
     Route: 041
     Dates: start: 20130816, end: 20130816
  14. ELPLAT [Suspect]
     Active Substance: OXALIPLATIN
     Indication: COLON CANCER
     Dosage: INJECTION
     Route: 041
     Dates: start: 20140905, end: 20140905
  15. ELPLAT [Suspect]
     Active Substance: OXALIPLATIN
     Indication: COLON CANCER
     Dosage: INJECTION
     Route: 041
     Dates: start: 20150109, end: 20150109
  16. CALCIUM LEVOFOLINATE [Concomitant]
     Active Substance: LEVOLEUCOVORIN CALCIUM
     Dosage: 200 MG/BODY
     Dates: start: 20130802
  17. CALCIUM LEVOFOLINATE [Concomitant]
     Active Substance: LEVOLEUCOVORIN CALCIUM
     Dates: end: 20150109
  18. 5-FU [Concomitant]
     Active Substance: FLUOROURACIL
     Dosage: BOLUS: 360 MG/BODY
  19. CHLORPHENIRAMINE MALEATE. [Concomitant]
     Active Substance: CHLORPHENIRAMINE MALEATE
     Dates: start: 20140725, end: 20140727
  20. ELPLAT [Suspect]
     Active Substance: OXALIPLATIN
     Indication: COLON CANCER
     Dosage: INJECTION
     Route: 041
     Dates: start: 20130830, end: 20130830
  21. ELPLAT [Suspect]
     Active Substance: OXALIPLATIN
     Indication: COLON CANCER
     Dosage: INJECTION
     Route: 041
     Dates: start: 20140117, end: 20140117
  22. ELPLAT [Suspect]
     Active Substance: OXALIPLATIN
     Indication: COLON CANCER
     Dosage: INJECTION
     Route: 041
     Dates: start: 20140425, end: 20140425
  23. ELPLAT [Suspect]
     Active Substance: OXALIPLATIN
     Indication: COLON CANCER
     Dosage: INJECTION
     Route: 041
     Dates: start: 20140725, end: 20140725
  24. 5-FU [Concomitant]
     Active Substance: FLUOROURACIL
     Dosage: CONTINUOUS INFUSION: 2400 MG/BODY: D1-D2
     Dates: start: 20130816
  25. AVASTIN [Concomitant]
     Active Substance: BEVACIZUMAB
     Dosage: GENETICAL RECOMBINATION: 175 MG/BODY
     Dates: start: 20140425, end: 20150109
  26. NAFAMOSTAT MESILATE [Concomitant]
     Active Substance: NAFAMOSTAT MESYLATE
     Dates: start: 20150109, end: 20150110
  27. ELPLAT [Suspect]
     Active Substance: OXALIPLATIN
     Indication: COLON CANCER
     Dosage: INJECTION
     Route: 041
     Dates: start: 20140214, end: 20140214
  28. ELPLAT [Suspect]
     Active Substance: OXALIPLATIN
     Indication: COLON CANCER
     Dosage: INJECTION
     Route: 041
     Dates: start: 20140711, end: 20140711
  29. ELPLAT [Suspect]
     Active Substance: OXALIPLATIN
     Indication: COLON CANCER
     Dosage: INJECTION
     Route: 041
     Dates: start: 20141128, end: 20141128
  30. CALCIUM LEVOFOLINATE [Concomitant]
     Active Substance: LEVOLEUCOVORIN CALCIUM
     Dosage: 180 MG/BODY
     Dates: start: 20130531
  31. 5-FU [Concomitant]
     Active Substance: FLUOROURACIL
     Dosage: CONTINUOUS INFUSION: 2300 MG/BODY/D1-D2
     Dates: start: 20140425
  32. ELPLAT [Suspect]
     Active Substance: OXALIPLATIN
     Indication: COLON CANCER
     Dosage: INJECTION
     Route: 041
     Dates: start: 20130802, end: 20130802
  33. 5-FU [Concomitant]
     Active Substance: FLUOROURACIL
     Dosage: BOLUS : 400 MG/BODY
     Dates: start: 20130816
  34. AVASTIN [Concomitant]
     Active Substance: BEVACIZUMAB
     Dates: start: 20160122
  35. METHYLPREDNISOLONE SODIUM SUCCINATE. [Concomitant]
     Active Substance: METHYLPREDNISOLONE SODIUM SUCCINATE
     Dates: start: 20150109, end: 20150112
  36. ELPLAT [Suspect]
     Active Substance: OXALIPLATIN
     Indication: COLON CANCER
     Dosage: INJECTION
     Route: 041
     Dates: start: 20131011, end: 20131011
  37. ELPLAT [Suspect]
     Active Substance: OXALIPLATIN
     Indication: COLON CANCER
     Dosage: INJECTION
     Route: 041
     Dates: start: 20131220, end: 20131220
  38. CALCIUM LEVOFOLINATE [Concomitant]
     Active Substance: LEVOLEUCOVORIN CALCIUM
     Dates: start: 20140425
  39. GRANISETRON [Concomitant]
     Active Substance: GRANISETRON
     Dates: start: 20130531, end: 20150109
  40. HEPARIN CALCIUM [Concomitant]
     Active Substance: HEPARIN CALCIUM
     Dates: start: 20130531, end: 20150109
  41. ELPLAT [Suspect]
     Active Substance: OXALIPLATIN
     Indication: COLON CANCER
     Dosage: INJECTION
     Route: 041
     Dates: start: 20140808, end: 20140808
  42. ELPLAT [Suspect]
     Active Substance: OXALIPLATIN
     Indication: COLON CANCER
     Dosage: INJECTION
     Route: 041
     Dates: start: 20141017, end: 20141017
  43. ESOMEPRAZOLE MAGNESIUM. [Concomitant]
     Active Substance: ESOMEPRAZOLE MAGNESIUM
     Dates: start: 20141219, end: 20150318

REACTIONS (14)
  - Neuropathy peripheral [Unknown]
  - Neutrophil count decreased [Unknown]
  - Vomiting [Recovered/Resolved]
  - Febrile neutropenia [Unknown]
  - Hypersensitivity [Recovered/Resolved]
  - Haemoglobin decreased [Unknown]
  - Pyrexia [Recovered/Resolved]
  - Gastric ulcer [Unknown]
  - Immune thrombocytopenic purpura [Recovered/Resolved]
  - Hypersensitivity [Unknown]
  - Urticaria [Unknown]
  - Pruritus [Unknown]
  - Nausea [Recovered/Resolved]
  - Diarrhoea [Recovered/Resolved]

NARRATIVE: CASE EVENT DATE: 20150109
